FAERS Safety Report 15634063 (Version 1)
Quarter: 2018Q4

REPORT INFORMATION
  Report Type: Spontaneous
  Country: US (occurrence: US)
  Receive Date: 20181119
  Receipt Date: 20181119
  Transmission Date: 20190205
  Serious: No
  Sender: FDA-Public Use
  Company Number: US-COLLEGIUM PHARMACEUTICAL, INC.-2018CGM00302

PATIENT
  Age: 59 Year
  Sex: Female
  Weight: 74.83 kg

DRUGS (25)
  1. SINGULAIR [Concomitant]
     Active Substance: MONTELUKAST SODIUM
  2. XTAMPZA ER [Suspect]
     Active Substance: OXYCODONE
     Dosage: 13.5 MG, 2X/DAY
     Route: 048
     Dates: start: 201809
  3. PROZAC [Concomitant]
     Active Substance: FLUOXETINE HYDROCHLORIDE
  4. AMLODIPINE [Concomitant]
     Active Substance: AMLODIPINE BESYLATE
  5. TIZANIDINE. [Concomitant]
     Active Substance: TIZANIDINE
  6. NEXIUM [Concomitant]
     Active Substance: ESOMEPRAZOLE MAGNESIUM
  7. LISINOPRIL. [Concomitant]
     Active Substance: LISINOPRIL
  8. VITAMIN D2 [Concomitant]
     Active Substance: ERGOCALCIFEROL
  9. LUNESTA [Concomitant]
     Active Substance: ESZOPICLONE
  10. METOPROLOL. [Concomitant]
     Active Substance: METOPROLOL
  11. FISH OIL [Concomitant]
     Active Substance: FISH OIL
  12. XTAMPZA ER [Suspect]
     Active Substance: OXYCODONE
     Indication: PAIN
     Dosage: 13.5 MG, 2X/DAY
     Route: 048
     Dates: start: 201801, end: 201809
  13. METFORMIN [Concomitant]
     Active Substance: METFORMIN HYDROCHLORIDE
  14. FOLIC ACID. [Concomitant]
     Active Substance: FOLIC ACID
  15. HYDROXYCHLOROQUINE [Concomitant]
     Active Substance: HYDROXYCHLOROQUINE
  16. ABILIFY [Concomitant]
     Active Substance: ARIPIPRAZOLE
  17. CYMBALTA [Concomitant]
     Active Substance: DULOXETINE HYDROCHLORIDE
  18. GABAPENTIN. [Concomitant]
     Active Substance: GABAPENTIN
  19. LACTULOSE. [Concomitant]
     Active Substance: LACTULOSE
  20. BUSPIRONE [Concomitant]
     Active Substance: BUSPIRONE HYDROCHLORIDE
  21. TRAZODONE [Concomitant]
     Active Substance: TRAZODONE HYDROCHLORIDE
  22. LEVOCETIRIZINE [Concomitant]
     Active Substance: LEVOCETIRIZINE
  23. LEVOTHYROXINE. [Concomitant]
     Active Substance: LEVOTHYROXINE
  24. MELOXICAM. [Concomitant]
     Active Substance: MELOXICAM
  25. GEMFIBROZIL. [Concomitant]
     Active Substance: GEMFIBROZIL

REACTIONS (2)
  - Product dose omission [Recovered/Resolved]
  - Malaise [Recovering/Resolving]

NARRATIVE: CASE EVENT DATE: 201809
